FAERS Safety Report 14858373 (Version 2)
Quarter: 2018Q2

REPORT INFORMATION
  Report Type: Spontaneous
  Country: US (occurrence: US)
  Receive Date: 20180508
  Receipt Date: 20180529
  Transmission Date: 20180711
  Serious: Yes (Other)
  Sender: FDA-Public Use
  Company Number: US-JNJFOC-20180501113

PATIENT
  Sex: Female
  Weight: 68.04 kg

DRUGS (1)
  1. AVEENO DAILY MOISTURIZING [Suspect]
     Active Substance: DIMETHICONE
     Indication: DRY SKIN
     Route: 061
     Dates: end: 20180415

REACTIONS (4)
  - Maternal exposure during pregnancy [Unknown]
  - Migraine [Recovered/Resolved]
  - Weight increased [Unknown]
  - Expired product administered [Unknown]
